FAERS Safety Report 23614512 (Version 1)
Quarter: 2024Q1

REPORT INFORMATION
  Report Type: Spontaneous
  Country: US (occurrence: US)
  Receive Date: 20240311
  Receipt Date: 20240311
  Transmission Date: 20240410
  Serious: Yes (Other)
  Sender: FDA-Public Use
  Company Number: US-SA-SAC20240307001268

PATIENT
  Age: 10 Year
  Sex: Male
  Weight: 35.83 kg

DRUGS (2)
  1. DUPIXENT [Suspect]
     Active Substance: DUPILUMAB
     Indication: Asthma
     Dosage: 300 MG, Q4W
     Route: 058
     Dates: start: 202312
  2. XOLAIR [Concomitant]
     Active Substance: OMALIZUMAB

REACTIONS (1)
  - Croup infectious [Unknown]
